FAERS Safety Report 7768662-9 (Version None)
Quarter: 2011Q3

REPORT INFORMATION
  Report Type: 
  Country: None (occurrence: None)
  Receive Date: 20110922
  Receipt Date: 20110603
  Transmission Date: 20111222
  Serious: Yes (Other)
  Sender: FDA-Public Use
  Company Number: US-ASTRAZENECA-2009UW03119

PATIENT
  Age: 9857 Day
  Sex: Male

DRUGS (2)
  1. SEROQUEL [Suspect]
     Route: 048
     Dates: start: 20050101, end: 20060101
  2. PAXIL [Concomitant]
     Route: 048
     Dates: start: 20060110

REACTIONS (3)
  - DIABETES MELLITUS [None]
  - PANCREATITIS [None]
  - HYPOGLYCAEMIA [None]
